FAERS Safety Report 22631967 (Version 1)
Quarter: 2023Q2

REPORT INFORMATION
  Report Type: Spontaneous
  Country: NL (occurrence: NL)
  Receive Date: 20230623
  Receipt Date: 20230623
  Transmission Date: 20230722
  Serious: Yes (Life-Threatening)
  Sender: FDA-Public Use
  Company Number: None

PATIENT
  Sex: Female
  Weight: 60 kg

DRUGS (4)
  1. SYMMETREL [Suspect]
     Active Substance: AMANTADINE HYDROCHLORIDE
     Indication: Parkinson^s disease
     Dosage: 100 MG, Q12H, (2 X PER DAG 1 STUK)
     Route: 065
     Dates: start: 20130521
  2. ROPINIROLE [Concomitant]
     Active Substance: ROPINIROLE
     Indication: Parkinson^s disease
     Dosage: 2 MG, QD, (1 X PER DAG 1 STUK)
     Route: 065
     Dates: start: 20130708
  3. CARBIDOPA\LEVODOPA [Concomitant]
     Active Substance: CARBIDOPA\LEVODOPA
     Indication: Parkinson^s disease
     Dosage: 1 DOSAGE FORM, Q3H, (7 X PER DAG MET TOTALE DOSERING VAN 11 STUKS / DAG_
     Route: 065
     Dates: start: 20131119
  4. SOLIFENACIN [Concomitant]
     Active Substance: SOLIFENACIN
     Indication: Incontinence
     Dosage: 5 MG, QD, (7 X PER DAG MET TOTALE DOSERING VAN 11 STUKS / DAG)
     Route: 065
     Dates: start: 20220926

REACTIONS (3)
  - Blood pressure decreased [Recovering/Resolving]
  - Parkinsonism [Recovering/Resolving]
  - Loss of consciousness [Recovering/Resolving]
